FAERS Safety Report 7147537-2 (Version None)
Quarter: 2010Q4

REPORT INFORMATION
  Report Type: 
  Country: None (occurrence: None)
  Receive Date: 20101209
  Receipt Date: 20030731
  Transmission Date: 20110411
  Serious: Yes (Death)
  Sender: FDA-Public Use
  Company Number: US-ACTELION-A-US2003-03123

PATIENT

DRUGS (2)
  1. BOSENTAN TABLET 62.5 MG US [Suspect]
     Indication: PULMONARY ARTERIAL HYPERTENSION
     Dosage: 62.5 MG, BID
     Route: 048
     Dates: start: 20020901
  2. BOSENTAN TABLET 62.5 MG US [Suspect]
     Dosage: 125 MG, BID
     Route: 048

REACTIONS (4)
  - ALANINE AMINOTRANSFERASE INCREASED [None]
  - ASPARTATE AMINOTRANSFERASE INCREASED [None]
  - DEATH [None]
  - LIVER FUNCTION TEST ABNORMAL [None]
